FAERS Safety Report 24966609 (Version 1)
Quarter: 2025Q1

REPORT INFORMATION
  Report Type: Spontaneous
  Country: US (occurrence: None)
  Receive Date: 20250213
  Receipt Date: 20250213
  Transmission Date: 20250408
  Serious: Yes (Other)
  Sender: FDA-CTU
  Company Number: None

PATIENT
  Age: 65 Year
  Sex: Female

DRUGS (8)
  1. ADBRY [Suspect]
     Active Substance: TRALOKINUMAB-LDRM
     Indication: Dermatitis atopic
     Dosage: FREQUENCY : EVERY OTHER WEEK;?
     Route: 058
     Dates: start: 20241217, end: 20250213
  2. AIMOVIG SU REC LICK 140MG/ML INJ SOL [Concomitant]
  3. ESTRADIOL 0.0375MG PATCH [Concomitant]
  4. GABAPENTIN [Concomitant]
     Active Substance: GABAPENTIN
  5. METHOCARBAMOL [Concomitant]
     Active Substance: METHOCARBAMOL
  6. OMEPRAZOLE [Concomitant]
     Active Substance: OMEPRAZOLE
  7. PROGESTERONE 200MG [Concomitant]
  8. TESTOSTERONE 1 % (12.5MG/1.25GM)PUMP [Concomitant]

REACTIONS (5)
  - Hypersensitivity [None]
  - Eye swelling [None]
  - Injection site reaction [None]
  - Injection site pain [None]
  - Injection site swelling [None]

NARRATIVE: CASE EVENT DATE: 20250203
